FAERS Safety Report 18789151 (Version 20)
Quarter: 2025Q2

REPORT INFORMATION
  Report Type: Report from Study
  Country: CA (occurrence: CA)
  Receive Date: 20210126
  Receipt Date: 20250422
  Transmission Date: 20250716
  Serious: Yes (Other)
  Sender: MYLAN
  Company Number: CA-PFIZER INC-2021040370

PATIENT
  Age: 60 Year
  Sex: Female

DRUGS (308)
  1. AMLODIPINE BESYLATE [Suspect]
     Active Substance: AMLODIPINE BESYLATE
     Indication: Migraine
  2. AMLODIPINE BESYLATE [Suspect]
     Active Substance: AMLODIPINE BESYLATE
     Route: 065
  3. AMLODIPINE BESYLATE [Suspect]
     Active Substance: AMLODIPINE BESYLATE
     Route: 065
  4. AMLODIPINE BESYLATE [Suspect]
     Active Substance: AMLODIPINE BESYLATE
  5. AMLODIPINE [Suspect]
     Active Substance: AMLODIPINE BESYLATE
     Indication: Migraine
  6. AMLODIPINE [Suspect]
     Active Substance: AMLODIPINE BESYLATE
     Route: 065
  7. AMLODIPINE [Suspect]
     Active Substance: AMLODIPINE BESYLATE
     Route: 065
  8. AMLODIPINE [Suspect]
     Active Substance: AMLODIPINE BESYLATE
  9. GABAPENTIN [Suspect]
     Active Substance: GABAPENTIN
     Indication: Migraine
  10. GABAPENTIN [Suspect]
     Active Substance: GABAPENTIN
     Route: 065
  11. GABAPENTIN [Suspect]
     Active Substance: GABAPENTIN
     Route: 065
  12. GABAPENTIN [Suspect]
     Active Substance: GABAPENTIN
  13. VENLAFAXINE HCL [Suspect]
     Active Substance: VENLAFAXINE HYDROCHLORIDE
     Indication: Product used for unknown indication
  14. VENLAFAXINE HCL [Suspect]
     Active Substance: VENLAFAXINE HYDROCHLORIDE
     Route: 065
  15. VENLAFAXINE HCL [Suspect]
     Active Substance: VENLAFAXINE HYDROCHLORIDE
     Route: 065
  16. VENLAFAXINE HCL [Suspect]
     Active Substance: VENLAFAXINE HYDROCHLORIDE
  17. VERAPAMIL [Suspect]
     Active Substance: VERAPAMIL HYDROCHLORIDE
     Indication: Migraine
  18. VERAPAMIL [Suspect]
     Active Substance: VERAPAMIL HYDROCHLORIDE
     Route: 065
  19. VERAPAMIL [Suspect]
     Active Substance: VERAPAMIL HYDROCHLORIDE
     Route: 065
  20. VERAPAMIL [Suspect]
     Active Substance: VERAPAMIL HYDROCHLORIDE
  21. RIZATRIPTAN [Suspect]
     Active Substance: RIZATRIPTAN
     Indication: Product used for unknown indication
  22. RIZATRIPTAN [Suspect]
     Active Substance: RIZATRIPTAN
     Route: 065
  23. RIZATRIPTAN [Suspect]
     Active Substance: RIZATRIPTAN
     Route: 065
  24. RIZATRIPTAN [Suspect]
     Active Substance: RIZATRIPTAN
  25. RIZATRIPTAN [Suspect]
     Active Substance: RIZATRIPTAN
     Indication: Product used for unknown indication
  26. RIZATRIPTAN [Suspect]
     Active Substance: RIZATRIPTAN
     Route: 065
  27. RIZATRIPTAN [Suspect]
     Active Substance: RIZATRIPTAN
     Route: 065
  28. RIZATRIPTAN [Suspect]
     Active Substance: RIZATRIPTAN
  29. VALPROIC ACID [Suspect]
     Active Substance: VALPROIC ACID
     Indication: Product used for unknown indication
  30. VALPROIC ACID [Suspect]
     Active Substance: VALPROIC ACID
     Route: 065
  31. VALPROIC ACID [Suspect]
     Active Substance: VALPROIC ACID
     Route: 065
  32. VALPROIC ACID [Suspect]
     Active Substance: VALPROIC ACID
  33. PROPRANOLOL HYDROCHLORIDE [Suspect]
     Active Substance: PROPRANOLOL HYDROCHLORIDE
     Indication: Migraine
     Dosage: 80 MILLIGRAM, QD (1 EVERY 1 DAYS)
     Route: 065
  34. PROPRANOLOL HYDROCHLORIDE [Suspect]
     Active Substance: PROPRANOLOL HYDROCHLORIDE
     Dosage: 80 MILLIGRAM, QD (1 EVERY 1 DAYS)
  35. PROPRANOLOL HYDROCHLORIDE [Suspect]
     Active Substance: PROPRANOLOL HYDROCHLORIDE
     Dosage: 80 MILLIGRAM, QD (1 EVERY 1 DAYS)
  36. PROPRANOLOL HYDROCHLORIDE [Suspect]
     Active Substance: PROPRANOLOL HYDROCHLORIDE
     Dosage: 80 MILLIGRAM, QD (1 EVERY 1 DAYS)
     Route: 065
  37. PROPRANOLOL HYDROCHLORIDE [Suspect]
     Active Substance: PROPRANOLOL HYDROCHLORIDE
     Route: 065
  38. PROPRANOLOL HYDROCHLORIDE [Suspect]
     Active Substance: PROPRANOLOL HYDROCHLORIDE
  39. PROPRANOLOL HYDROCHLORIDE [Suspect]
     Active Substance: PROPRANOLOL HYDROCHLORIDE
  40. PROPRANOLOL HYDROCHLORIDE [Suspect]
     Active Substance: PROPRANOLOL HYDROCHLORIDE
     Route: 065
  41. PROPRANOLOL HYDROCHLORIDE [Suspect]
     Active Substance: PROPRANOLOL HYDROCHLORIDE
     Dosage: 40 MILLIGRAM, QD (1 EVERY 1 DAYS)
  42. PROPRANOLOL HYDROCHLORIDE [Suspect]
     Active Substance: PROPRANOLOL HYDROCHLORIDE
     Dosage: 40 MILLIGRAM, QD (1 EVERY 1 DAYS)
  43. PROPRANOLOL HYDROCHLORIDE [Suspect]
     Active Substance: PROPRANOLOL HYDROCHLORIDE
     Dosage: 40 MILLIGRAM, QD (1 EVERY 1 DAYS)
     Route: 065
  44. PROPRANOLOL HYDROCHLORIDE [Suspect]
     Active Substance: PROPRANOLOL HYDROCHLORIDE
     Dosage: 40 MILLIGRAM, QD (1 EVERY 1 DAYS)
     Route: 065
  45. PROPRANOLOL HYDROCHLORIDE [Suspect]
     Active Substance: PROPRANOLOL HYDROCHLORIDE
     Dosage: 40 MILLIGRAM, BID (2 EVERY 1 DAYS)
  46. PROPRANOLOL HYDROCHLORIDE [Suspect]
     Active Substance: PROPRANOLOL HYDROCHLORIDE
     Dosage: 40 MILLIGRAM, BID (2 EVERY 1 DAYS)
  47. PROPRANOLOL HYDROCHLORIDE [Suspect]
     Active Substance: PROPRANOLOL HYDROCHLORIDE
     Dosage: 40 MILLIGRAM, BID (2 EVERY 1 DAYS)
     Route: 065
  48. PROPRANOLOL HYDROCHLORIDE [Suspect]
     Active Substance: PROPRANOLOL HYDROCHLORIDE
     Dosage: 40 MILLIGRAM, BID (2 EVERY 1 DAYS)
     Route: 065
  49. AIMOVIG [Suspect]
     Active Substance: ERENUMAB-AOOE
     Indication: Migraine
  50. AIMOVIG [Suspect]
     Active Substance: ERENUMAB-AOOE
     Route: 065
  51. AIMOVIG [Suspect]
     Active Substance: ERENUMAB-AOOE
     Route: 065
  52. AIMOVIG [Suspect]
     Active Substance: ERENUMAB-AOOE
  53. CLONIDINE [Suspect]
     Active Substance: CLONIDINE
     Indication: Product used for unknown indication
  54. CLONIDINE [Suspect]
     Active Substance: CLONIDINE
     Route: 065
  55. CLONIDINE [Suspect]
     Active Substance: CLONIDINE
     Route: 065
  56. CLONIDINE [Suspect]
     Active Substance: CLONIDINE
  57. CORGARD [Suspect]
     Active Substance: NADOLOL
     Indication: Product used for unknown indication
  58. CORGARD [Suspect]
     Active Substance: NADOLOL
     Route: 065
  59. CORGARD [Suspect]
     Active Substance: NADOLOL
     Route: 065
  60. CORGARD [Suspect]
     Active Substance: NADOLOL
  61. DESYREL [Suspect]
     Active Substance: TRAZODONE HYDROCHLORIDE
     Indication: Product used for unknown indication
  62. DESYREL [Suspect]
     Active Substance: TRAZODONE HYDROCHLORIDE
     Route: 065
  63. DESYREL [Suspect]
     Active Substance: TRAZODONE HYDROCHLORIDE
     Route: 065
  64. DESYREL [Suspect]
     Active Substance: TRAZODONE HYDROCHLORIDE
  65. DIHYDROERGOTAMINE [Suspect]
     Active Substance: DIHYDROERGOTAMINE
     Indication: Migraine
  66. DIHYDROERGOTAMINE [Suspect]
     Active Substance: DIHYDROERGOTAMINE
     Route: 065
  67. DIHYDROERGOTAMINE [Suspect]
     Active Substance: DIHYDROERGOTAMINE
     Route: 065
  68. DIHYDROERGOTAMINE [Suspect]
     Active Substance: DIHYDROERGOTAMINE
  69. LAMICTAL [Suspect]
     Active Substance: LAMOTRIGINE
     Indication: Product used for unknown indication
  70. LAMICTAL [Suspect]
     Active Substance: LAMOTRIGINE
     Route: 065
  71. LAMICTAL [Suspect]
     Active Substance: LAMOTRIGINE
     Route: 065
  72. LAMICTAL [Suspect]
     Active Substance: LAMOTRIGINE
  73. NARATRIPTAN HYDROCHLORIDE [Suspect]
     Active Substance: NARATRIPTAN HYDROCHLORIDE
     Indication: Product used for unknown indication
  74. NARATRIPTAN HYDROCHLORIDE [Suspect]
     Active Substance: NARATRIPTAN HYDROCHLORIDE
     Route: 065
  75. NARATRIPTAN HYDROCHLORIDE [Suspect]
     Active Substance: NARATRIPTAN HYDROCHLORIDE
     Route: 065
  76. NARATRIPTAN HYDROCHLORIDE [Suspect]
     Active Substance: NARATRIPTAN HYDROCHLORIDE
  77. PIZOTYLINE MALEATE [Suspect]
     Active Substance: PIZOTYLINE MALEATE
     Indication: Product used for unknown indication
  78. PIZOTYLINE MALEATE [Suspect]
     Active Substance: PIZOTYLINE MALEATE
     Route: 065
  79. PIZOTYLINE MALEATE [Suspect]
     Active Substance: PIZOTYLINE MALEATE
     Route: 065
  80. PIZOTYLINE MALEATE [Suspect]
     Active Substance: PIZOTYLINE MALEATE
  81. PREDNISONE [Suspect]
     Active Substance: PREDNISONE
     Indication: Product used for unknown indication
  82. PREDNISONE [Suspect]
     Active Substance: PREDNISONE
     Route: 065
  83. PREDNISONE [Suspect]
     Active Substance: PREDNISONE
     Route: 065
  84. PREDNISONE [Suspect]
     Active Substance: PREDNISONE
  85. PROCHLORPERAZINE [Suspect]
     Active Substance: PROCHLORPERAZINE
     Indication: Product used for unknown indication
  86. PROCHLORPERAZINE [Suspect]
     Active Substance: PROCHLORPERAZINE
     Route: 065
  87. PROCHLORPERAZINE [Suspect]
     Active Substance: PROCHLORPERAZINE
     Route: 065
  88. PROCHLORPERAZINE [Suspect]
     Active Substance: PROCHLORPERAZINE
  89. TOPAMAX [Suspect]
     Active Substance: TOPIRAMATE
     Indication: Product used for unknown indication
     Route: 065
  90. TOPAMAX [Suspect]
     Active Substance: TOPIRAMATE
  91. TOPAMAX [Suspect]
     Active Substance: TOPIRAMATE
  92. TOPAMAX [Suspect]
     Active Substance: TOPIRAMATE
     Route: 065
  93. TOPAMAX [Suspect]
     Active Substance: TOPIRAMATE
     Route: 065
  94. TOPAMAX [Suspect]
     Active Substance: TOPIRAMATE
  95. TOPAMAX [Suspect]
     Active Substance: TOPIRAMATE
  96. TOPAMAX [Suspect]
     Active Substance: TOPIRAMATE
     Route: 065
  97. ERENUMAB [Suspect]
     Active Substance: ERENUMAB
     Indication: Migraine
  98. ERENUMAB [Suspect]
     Active Substance: ERENUMAB
     Route: 065
  99. ERENUMAB [Suspect]
     Active Substance: ERENUMAB
     Route: 065
  100. ERENUMAB [Suspect]
     Active Substance: ERENUMAB
  101. PROCHLORPERAZINE MALEATE [Suspect]
     Active Substance: PROCHLORPERAZINE MALEATE
     Indication: Product used for unknown indication
  102. PROCHLORPERAZINE MALEATE [Suspect]
     Active Substance: PROCHLORPERAZINE MALEATE
     Route: 065
  103. PROCHLORPERAZINE MALEATE [Suspect]
     Active Substance: PROCHLORPERAZINE MALEATE
     Route: 065
  104. PROCHLORPERAZINE MALEATE [Suspect]
     Active Substance: PROCHLORPERAZINE MALEATE
  105. ERENUMAB-AOOE [Suspect]
     Active Substance: ERENUMAB-AOOE
     Indication: Migraine
  106. ERENUMAB-AOOE [Suspect]
     Active Substance: ERENUMAB-AOOE
     Route: 065
  107. ERENUMAB-AOOE [Suspect]
     Active Substance: ERENUMAB-AOOE
     Route: 065
  108. ERENUMAB-AOOE [Suspect]
     Active Substance: ERENUMAB-AOOE
  109. METOCLOPRAMIDE HYDROCHLORIDE [Suspect]
     Active Substance: METOCLOPRAMIDE HYDROCHLORIDE
     Indication: Product used for unknown indication
  110. METOCLOPRAMIDE HYDROCHLORIDE [Suspect]
     Active Substance: METOCLOPRAMIDE HYDROCHLORIDE
     Route: 065
  111. METOCLOPRAMIDE HYDROCHLORIDE [Suspect]
     Active Substance: METOCLOPRAMIDE HYDROCHLORIDE
     Route: 065
  112. METOCLOPRAMIDE HYDROCHLORIDE [Suspect]
     Active Substance: METOCLOPRAMIDE HYDROCHLORIDE
  113. NARATRIPTAN HYDROCHLORIDE [Suspect]
     Active Substance: NARATRIPTAN HYDROCHLORIDE
     Indication: Product used for unknown indication
  114. NARATRIPTAN HYDROCHLORIDE [Suspect]
     Active Substance: NARATRIPTAN HYDROCHLORIDE
     Route: 065
  115. NARATRIPTAN HYDROCHLORIDE [Suspect]
     Active Substance: NARATRIPTAN HYDROCHLORIDE
     Route: 065
  116. NARATRIPTAN HYDROCHLORIDE [Suspect]
     Active Substance: NARATRIPTAN HYDROCHLORIDE
  117. NORTRIPTYLINE [Suspect]
     Active Substance: NORTRIPTYLINE
     Indication: Product used for unknown indication
  118. NORTRIPTYLINE [Suspect]
     Active Substance: NORTRIPTYLINE
     Route: 065
  119. NORTRIPTYLINE [Suspect]
     Active Substance: NORTRIPTYLINE
     Route: 065
  120. NORTRIPTYLINE [Suspect]
     Active Substance: NORTRIPTYLINE
  121. PROCHLORPERAZINE [Suspect]
     Active Substance: PROCHLORPERAZINE
     Indication: Nausea
  122. PROCHLORPERAZINE [Suspect]
     Active Substance: PROCHLORPERAZINE
     Route: 065
  123. PROCHLORPERAZINE [Suspect]
     Active Substance: PROCHLORPERAZINE
     Route: 065
  124. PROCHLORPERAZINE [Suspect]
     Active Substance: PROCHLORPERAZINE
  125. PROCHLORPERAZINE [Suspect]
     Active Substance: PROCHLORPERAZINE
     Indication: Product used for unknown indication
  126. PROCHLORPERAZINE [Suspect]
     Active Substance: PROCHLORPERAZINE
     Route: 065
  127. PROCHLORPERAZINE [Suspect]
     Active Substance: PROCHLORPERAZINE
     Route: 065
  128. PROCHLORPERAZINE [Suspect]
     Active Substance: PROCHLORPERAZINE
  129. PROPRANOLOL HYDROCHLORIDE [Suspect]
     Active Substance: PROPRANOLOL HYDROCHLORIDE
     Indication: Migraine
     Route: 065
  130. PROPRANOLOL HYDROCHLORIDE [Suspect]
     Active Substance: PROPRANOLOL HYDROCHLORIDE
  131. PROPRANOLOL HYDROCHLORIDE [Suspect]
     Active Substance: PROPRANOLOL HYDROCHLORIDE
  132. PROPRANOLOL HYDROCHLORIDE [Suspect]
     Active Substance: PROPRANOLOL HYDROCHLORIDE
     Route: 065
  133. PROPRANOLOL HYDROCHLORIDE [Suspect]
     Active Substance: PROPRANOLOL HYDROCHLORIDE
     Dosage: 40 MILLIGRAM, BID (2 EVERY 1 DAY)
     Route: 065
  134. PROPRANOLOL HYDROCHLORIDE [Suspect]
     Active Substance: PROPRANOLOL HYDROCHLORIDE
     Dosage: 40 MILLIGRAM, BID (2 EVERY 1 DAY)
  135. PROPRANOLOL HYDROCHLORIDE [Suspect]
     Active Substance: PROPRANOLOL HYDROCHLORIDE
     Dosage: 40 MILLIGRAM, BID (2 EVERY 1 DAY)
  136. PROPRANOLOL HYDROCHLORIDE [Suspect]
     Active Substance: PROPRANOLOL HYDROCHLORIDE
     Dosage: 40 MILLIGRAM, BID (2 EVERY 1 DAY)
     Route: 065
  137. PROPRANOLOL HYDROCHLORIDE [Suspect]
     Active Substance: PROPRANOLOL HYDROCHLORIDE
     Dosage: 40 MILLIGRAM, QD (1 EVERY 1 DAY)
  138. PROPRANOLOL HYDROCHLORIDE [Suspect]
     Active Substance: PROPRANOLOL HYDROCHLORIDE
     Dosage: 40 MILLIGRAM, QD (1 EVERY 1 DAY)
  139. PROPRANOLOL HYDROCHLORIDE [Suspect]
     Active Substance: PROPRANOLOL HYDROCHLORIDE
     Dosage: 40 MILLIGRAM, QD (1 EVERY 1 DAY)
     Route: 065
  140. PROPRANOLOL HYDROCHLORIDE [Suspect]
     Active Substance: PROPRANOLOL HYDROCHLORIDE
     Dosage: 40 MILLIGRAM, QD (1 EVERY 1 DAY)
     Route: 065
  141. PROPRANOLOL HYDROCHLORIDE [Suspect]
     Active Substance: PROPRANOLOL HYDROCHLORIDE
     Dosage: 80 MILLIGRAM, QD (1 EVERY 1 DAY)
  142. PROPRANOLOL HYDROCHLORIDE [Suspect]
     Active Substance: PROPRANOLOL HYDROCHLORIDE
     Dosage: 80 MILLIGRAM, QD (1 EVERY 1 DAY)
  143. PROPRANOLOL HYDROCHLORIDE [Suspect]
     Active Substance: PROPRANOLOL HYDROCHLORIDE
     Dosage: 80 MILLIGRAM, QD (1 EVERY 1 DAY)
     Route: 065
  144. PROPRANOLOL HYDROCHLORIDE [Suspect]
     Active Substance: PROPRANOLOL HYDROCHLORIDE
     Dosage: 80 MILLIGRAM, QD (1 EVERY 1 DAY)
     Route: 065
  145. TOPAMAX [Suspect]
     Active Substance: TOPIRAMATE
     Indication: Product used for unknown indication
  146. TOPAMAX [Suspect]
     Active Substance: TOPIRAMATE
     Route: 065
  147. TOPAMAX [Suspect]
     Active Substance: TOPIRAMATE
     Route: 065
  148. TOPAMAX [Suspect]
     Active Substance: TOPIRAMATE
  149. DIVALPROEX SODIUM [Suspect]
     Active Substance: DIVALPROEX SODIUM
     Indication: Product used for unknown indication
  150. DIVALPROEX SODIUM [Suspect]
     Active Substance: DIVALPROEX SODIUM
     Route: 065
  151. DIVALPROEX SODIUM [Suspect]
     Active Substance: DIVALPROEX SODIUM
     Route: 065
  152. DIVALPROEX SODIUM [Suspect]
     Active Substance: DIVALPROEX SODIUM
  153. CANDESARTAN [Suspect]
     Active Substance: CANDESARTAN
     Indication: Migraine
  154. CANDESARTAN [Suspect]
     Active Substance: CANDESARTAN
  155. CANDESARTAN [Suspect]
     Active Substance: CANDESARTAN
     Route: 048
  156. CANDESARTAN [Suspect]
     Active Substance: CANDESARTAN
     Route: 048
  157. CANDESARTAN [Suspect]
     Active Substance: CANDESARTAN
     Dosage: 16 MILLIGRAM, QD (1 EVERY 1 DAYS)
  158. CANDESARTAN [Suspect]
     Active Substance: CANDESARTAN
     Dosage: 16 MILLIGRAM, QD (1 EVERY 1 DAYS)
  159. CANDESARTAN [Suspect]
     Active Substance: CANDESARTAN
     Dosage: 16 MILLIGRAM, QD (1 EVERY 1 DAYS)
     Route: 048
  160. CANDESARTAN [Suspect]
     Active Substance: CANDESARTAN
     Dosage: 16 MILLIGRAM, QD (1 EVERY 1 DAYS)
     Route: 048
  161. CLONIDINE [Suspect]
     Active Substance: CLONIDINE
     Indication: Product used for unknown indication
  162. CLONIDINE [Suspect]
     Active Substance: CLONIDINE
     Route: 065
  163. CLONIDINE [Suspect]
     Active Substance: CLONIDINE
     Route: 065
  164. CLONIDINE [Suspect]
     Active Substance: CLONIDINE
  165. CANDESARTAN [Suspect]
     Active Substance: CANDESARTAN
     Indication: Migraine
     Dosage: 16 MILLIGRAM, QD (1 EVERY 1 DAYS)
  166. CANDESARTAN [Suspect]
     Active Substance: CANDESARTAN
     Dosage: 16 MILLIGRAM, QD (1 EVERY 1 DAYS)
     Route: 065
  167. CANDESARTAN [Suspect]
     Active Substance: CANDESARTAN
     Dosage: 16 MILLIGRAM, QD (1 EVERY 1 DAYS)
     Route: 065
  168. CANDESARTAN [Suspect]
     Active Substance: CANDESARTAN
     Dosage: 16 MILLIGRAM, QD (1 EVERY 1 DAYS)
  169. DIHYDROERGOTAMINE MESYLATE [Suspect]
     Active Substance: DIHYDROERGOTAMINE MESYLATE
     Indication: Migraine
  170. DIHYDROERGOTAMINE MESYLATE [Suspect]
     Active Substance: DIHYDROERGOTAMINE MESYLATE
     Route: 065
  171. DIHYDROERGOTAMINE MESYLATE [Suspect]
     Active Substance: DIHYDROERGOTAMINE MESYLATE
     Route: 065
  172. DIHYDROERGOTAMINE MESYLATE [Suspect]
     Active Substance: DIHYDROERGOTAMINE MESYLATE
  173. LAMOTRIGINE [Suspect]
     Active Substance: LAMOTRIGINE
     Indication: Product used for unknown indication
  174. LAMOTRIGINE [Suspect]
     Active Substance: LAMOTRIGINE
     Route: 065
  175. LAMOTRIGINE [Suspect]
     Active Substance: LAMOTRIGINE
     Route: 065
  176. LAMOTRIGINE [Suspect]
     Active Substance: LAMOTRIGINE
  177. RIZATRIPTAN [Suspect]
     Active Substance: RIZATRIPTAN
     Indication: Product used for unknown indication
  178. RIZATRIPTAN [Suspect]
     Active Substance: RIZATRIPTAN
     Route: 065
  179. RIZATRIPTAN [Suspect]
     Active Substance: RIZATRIPTAN
     Route: 065
  180. RIZATRIPTAN [Suspect]
     Active Substance: RIZATRIPTAN
  181. METOCLOPRAMIDE HYDROCHLORIDE [Suspect]
     Active Substance: METOCLOPRAMIDE HYDROCHLORIDE
     Indication: Product used for unknown indication
  182. METOCLOPRAMIDE HYDROCHLORIDE [Suspect]
     Active Substance: METOCLOPRAMIDE HYDROCHLORIDE
     Route: 065
  183. METOCLOPRAMIDE HYDROCHLORIDE [Suspect]
     Active Substance: METOCLOPRAMIDE HYDROCHLORIDE
     Route: 065
  184. METOCLOPRAMIDE HYDROCHLORIDE [Suspect]
     Active Substance: METOCLOPRAMIDE HYDROCHLORIDE
  185. NIFEDIPINE [Suspect]
     Active Substance: NIFEDIPINE
     Indication: Product used for unknown indication
  186. NIFEDIPINE [Suspect]
     Active Substance: NIFEDIPINE
     Route: 065
  187. NIFEDIPINE [Suspect]
     Active Substance: NIFEDIPINE
     Route: 065
  188. NIFEDIPINE [Suspect]
     Active Substance: NIFEDIPINE
  189. NAPROXEN [Suspect]
     Active Substance: NAPROXEN
     Indication: Product used for unknown indication
  190. NAPROXEN [Suspect]
     Active Substance: NAPROXEN
     Route: 065
  191. NAPROXEN [Suspect]
     Active Substance: NAPROXEN
     Route: 065
  192. NAPROXEN [Suspect]
     Active Substance: NAPROXEN
  193. PIZOTYLINE [Suspect]
     Active Substance: PIZOTYLINE
     Indication: Product used for unknown indication
  194. PIZOTYLINE [Suspect]
     Active Substance: PIZOTYLINE
     Route: 065
  195. PIZOTYLINE [Suspect]
     Active Substance: PIZOTYLINE
     Route: 065
  196. PIZOTYLINE [Suspect]
     Active Substance: PIZOTYLINE
  197. PROPRANOLOL [Suspect]
     Active Substance: PROPRANOLOL HYDROCHLORIDE
     Indication: Migraine
  198. PROPRANOLOL [Suspect]
     Active Substance: PROPRANOLOL HYDROCHLORIDE
     Route: 065
  199. PROPRANOLOL [Suspect]
     Active Substance: PROPRANOLOL HYDROCHLORIDE
     Route: 065
  200. PROPRANOLOL [Suspect]
     Active Substance: PROPRANOLOL HYDROCHLORIDE
  201. TOPIRAMATE [Suspect]
     Active Substance: TOPIRAMATE
     Indication: Product used for unknown indication
  202. TOPIRAMATE [Suspect]
     Active Substance: TOPIRAMATE
     Route: 065
  203. TOPIRAMATE [Suspect]
     Active Substance: TOPIRAMATE
     Route: 065
  204. TOPIRAMATE [Suspect]
     Active Substance: TOPIRAMATE
  205. TRAZODONE HYDROCHLORIDE [Suspect]
     Active Substance: TRAZODONE HYDROCHLORIDE
     Indication: Product used for unknown indication
  206. TRAZODONE HYDROCHLORIDE [Suspect]
     Active Substance: TRAZODONE HYDROCHLORIDE
     Route: 065
  207. TRAZODONE HYDROCHLORIDE [Suspect]
     Active Substance: TRAZODONE HYDROCHLORIDE
     Route: 065
  208. TRAZODONE HYDROCHLORIDE [Suspect]
     Active Substance: TRAZODONE HYDROCHLORIDE
  209. ATENOLOL [Suspect]
     Active Substance: ATENOLOL
     Indication: Product used for unknown indication
  210. ATENOLOL [Suspect]
     Active Substance: ATENOLOL
  211. ATENOLOL [Suspect]
     Active Substance: ATENOLOL
     Route: 048
  212. ATENOLOL [Suspect]
     Active Substance: ATENOLOL
     Route: 048
  213. ATENOLOL [Suspect]
     Active Substance: ATENOLOL
  214. ATENOLOL [Suspect]
     Active Substance: ATENOLOL
  215. ATENOLOL [Suspect]
     Active Substance: ATENOLOL
     Route: 065
  216. ATENOLOL [Suspect]
     Active Substance: ATENOLOL
     Route: 065
  217. ZOPICLONE [Suspect]
     Active Substance: ZOPICLONE
     Indication: Migraine
  218. ZOPICLONE [Suspect]
     Active Substance: ZOPICLONE
     Route: 065
  219. ZOPICLONE [Suspect]
     Active Substance: ZOPICLONE
     Route: 065
  220. ZOPICLONE [Suspect]
     Active Substance: ZOPICLONE
  221. VERAPAMIL HYDROCHLORIDE [Suspect]
     Active Substance: VERAPAMIL HYDROCHLORIDE
     Indication: Product used for unknown indication
  222. VERAPAMIL HYDROCHLORIDE [Suspect]
     Active Substance: VERAPAMIL HYDROCHLORIDE
     Route: 065
  223. VERAPAMIL HYDROCHLORIDE [Suspect]
     Active Substance: VERAPAMIL HYDROCHLORIDE
     Route: 065
  224. VERAPAMIL HYDROCHLORIDE [Suspect]
     Active Substance: VERAPAMIL HYDROCHLORIDE
  225. BOTULINUM TOXIN TYPE A [Concomitant]
     Active Substance: BOTULINUM TOXIN TYPE A
  226. BOTULINUM TOXIN TYPE A [Concomitant]
     Active Substance: BOTULINUM TOXIN TYPE A
  227. BOTULINUM TOXIN TYPE A [Concomitant]
     Active Substance: BOTULINUM TOXIN TYPE A
     Route: 065
  228. BOTULINUM TOXIN TYPE A [Concomitant]
     Active Substance: BOTULINUM TOXIN TYPE A
     Route: 065
  229. BOTULINUM TOXIN TYPE A [Concomitant]
     Active Substance: BOTULINUM TOXIN TYPE A
  230. BOTULINUM TOXIN TYPE A [Concomitant]
     Active Substance: BOTULINUM TOXIN TYPE A
  231. BOTULINUM TOXIN TYPE A [Concomitant]
     Active Substance: BOTULINUM TOXIN TYPE A
     Route: 065
  232. BOTULINUM TOXIN TYPE A [Concomitant]
     Active Substance: BOTULINUM TOXIN TYPE A
     Route: 065
  233. ALLOPURINOL [Concomitant]
     Active Substance: ALLOPURINOL
     Route: 065
  234. ALLOPURINOL [Concomitant]
     Active Substance: ALLOPURINOL
  235. ALLOPURINOL [Concomitant]
     Active Substance: ALLOPURINOL
  236. ALLOPURINOL [Concomitant]
     Active Substance: ALLOPURINOL
     Route: 065
  237. ALLOPURINOL [Concomitant]
     Active Substance: ALLOPURINOL
     Route: 065
  238. ALLOPURINOL [Concomitant]
     Active Substance: ALLOPURINOL
  239. ALLOPURINOL [Concomitant]
     Active Substance: ALLOPURINOL
  240. ALLOPURINOL [Concomitant]
     Active Substance: ALLOPURINOL
     Route: 065
  241. FROVATRIPTAN SUCCINATE [Concomitant]
     Active Substance: FROVATRIPTAN SUCCINATE
  242. FROVATRIPTAN SUCCINATE [Concomitant]
     Active Substance: FROVATRIPTAN SUCCINATE
     Route: 065
  243. FROVATRIPTAN SUCCINATE [Concomitant]
     Active Substance: FROVATRIPTAN SUCCINATE
     Route: 065
  244. FROVATRIPTAN SUCCINATE [Concomitant]
     Active Substance: FROVATRIPTAN SUCCINATE
  245. TENORMIN [Concomitant]
     Active Substance: ATENOLOL
     Indication: Product used for unknown indication
  246. TENORMIN [Concomitant]
     Active Substance: ATENOLOL
     Route: 065
  247. TENORMIN [Concomitant]
     Active Substance: ATENOLOL
     Route: 065
  248. TENORMIN [Concomitant]
     Active Substance: ATENOLOL
  249. TYLENOL [Concomitant]
     Active Substance: ACETAMINOPHEN
  250. TYLENOL [Concomitant]
     Active Substance: ACETAMINOPHEN
     Route: 065
  251. TYLENOL [Concomitant]
     Active Substance: ACETAMINOPHEN
     Route: 065
  252. TYLENOL [Concomitant]
     Active Substance: ACETAMINOPHEN
  253. ALLOPURINOL [Concomitant]
     Active Substance: ALLOPURINOL
     Indication: Product used for unknown indication
  254. ALLOPURINOL [Concomitant]
     Active Substance: ALLOPURINOL
     Route: 065
  255. ALLOPURINOL [Concomitant]
     Active Substance: ALLOPURINOL
     Route: 065
  256. ALLOPURINOL [Concomitant]
     Active Substance: ALLOPURINOL
  257. BOTULINUM TOXIN TYPE A [Concomitant]
     Active Substance: BOTULINUM TOXIN TYPE A
     Route: 065
  258. BOTULINUM TOXIN TYPE A [Concomitant]
     Active Substance: BOTULINUM TOXIN TYPE A
  259. BOTULINUM TOXIN TYPE A [Concomitant]
     Active Substance: BOTULINUM TOXIN TYPE A
  260. BOTULINUM TOXIN TYPE A [Concomitant]
     Active Substance: BOTULINUM TOXIN TYPE A
     Route: 065
  261. BOTULINUM TOXIN TYPE A [Concomitant]
     Active Substance: BOTULINUM TOXIN TYPE A
     Route: 030
  262. BOTULINUM TOXIN TYPE A [Concomitant]
     Active Substance: BOTULINUM TOXIN TYPE A
  263. BOTULINUM TOXIN TYPE A [Concomitant]
     Active Substance: BOTULINUM TOXIN TYPE A
  264. BOTULINUM TOXIN TYPE A [Concomitant]
     Active Substance: BOTULINUM TOXIN TYPE A
     Route: 030
  265. GRAVOL [Concomitant]
     Active Substance: DIMENHYDRINATE
  266. GRAVOL [Concomitant]
     Active Substance: DIMENHYDRINATE
     Route: 065
  267. GRAVOL [Concomitant]
     Active Substance: DIMENHYDRINATE
     Route: 065
  268. GRAVOL [Concomitant]
     Active Substance: DIMENHYDRINATE
  269. VALPROATE SODIUM [Concomitant]
     Active Substance: VALPROATE SODIUM
  270. VALPROATE SODIUM [Concomitant]
     Active Substance: VALPROATE SODIUM
     Route: 065
  271. VALPROATE SODIUM [Concomitant]
     Active Substance: VALPROATE SODIUM
     Route: 065
  272. VALPROATE SODIUM [Concomitant]
     Active Substance: VALPROATE SODIUM
  273. FROVATRIPTAN [Concomitant]
     Active Substance: FROVATRIPTAN
  274. FROVATRIPTAN [Concomitant]
     Active Substance: FROVATRIPTAN
     Route: 065
  275. FROVATRIPTAN [Concomitant]
     Active Substance: FROVATRIPTAN
     Route: 065
  276. FROVATRIPTAN [Concomitant]
     Active Substance: FROVATRIPTAN
  277. VALPROATE SODIUM [Concomitant]
     Active Substance: VALPROATE SODIUM
  278. VALPROATE SODIUM [Concomitant]
     Active Substance: VALPROATE SODIUM
     Route: 065
  279. VALPROATE SODIUM [Concomitant]
     Active Substance: VALPROATE SODIUM
     Route: 065
  280. VALPROATE SODIUM [Concomitant]
     Active Substance: VALPROATE SODIUM
  281. DIHYDROERGOTAMINE MESYLATE [Suspect]
     Active Substance: DIHYDROERGOTAMINE MESYLATE
     Indication: Migraine
  282. DIHYDROERGOTAMINE MESYLATE [Suspect]
     Active Substance: DIHYDROERGOTAMINE MESYLATE
     Route: 065
  283. DIHYDROERGOTAMINE MESYLATE [Suspect]
     Active Substance: DIHYDROERGOTAMINE MESYLATE
     Route: 065
  284. DIHYDROERGOTAMINE MESYLATE [Suspect]
     Active Substance: DIHYDROERGOTAMINE MESYLATE
  285. RIZATRIPTAN BENZOATE [Suspect]
     Active Substance: RIZATRIPTAN BENZOATE
     Indication: Product used for unknown indication
  286. RIZATRIPTAN BENZOATE [Suspect]
     Active Substance: RIZATRIPTAN BENZOATE
     Route: 065
  287. RIZATRIPTAN BENZOATE [Suspect]
     Active Substance: RIZATRIPTAN BENZOATE
     Route: 065
  288. RIZATRIPTAN BENZOATE [Suspect]
     Active Substance: RIZATRIPTAN BENZOATE
  289. VENLAFAXINE HYDROCHLORIDE [Suspect]
     Active Substance: VENLAFAXINE HYDROCHLORIDE
     Indication: Product used for unknown indication
  290. VENLAFAXINE HYDROCHLORIDE [Suspect]
     Active Substance: VENLAFAXINE HYDROCHLORIDE
     Route: 065
  291. VENLAFAXINE HYDROCHLORIDE [Suspect]
     Active Substance: VENLAFAXINE HYDROCHLORIDE
     Route: 065
  292. VENLAFAXINE HYDROCHLORIDE [Suspect]
     Active Substance: VENLAFAXINE HYDROCHLORIDE
  293. VERAPAMIL HYDROCHLORIDE [Suspect]
     Active Substance: VERAPAMIL HYDROCHLORIDE
     Indication: Migraine
  294. VERAPAMIL HYDROCHLORIDE [Suspect]
     Active Substance: VERAPAMIL HYDROCHLORIDE
     Route: 065
  295. VERAPAMIL HYDROCHLORIDE [Suspect]
     Active Substance: VERAPAMIL HYDROCHLORIDE
     Route: 065
  296. VERAPAMIL HYDROCHLORIDE [Suspect]
     Active Substance: VERAPAMIL HYDROCHLORIDE
  297. PIZOTYLINE [Suspect]
     Active Substance: PIZOTYLINE
     Indication: Product used for unknown indication
  298. PIZOTYLINE [Suspect]
     Active Substance: PIZOTYLINE
     Route: 065
  299. PIZOTYLINE [Suspect]
     Active Substance: PIZOTYLINE
     Route: 065
  300. PIZOTYLINE [Suspect]
     Active Substance: PIZOTYLINE
  301. TOPIRAMATE [Suspect]
     Active Substance: TOPIRAMATE
     Indication: Product used for unknown indication
  302. TOPIRAMATE [Suspect]
     Active Substance: TOPIRAMATE
  303. TOPIRAMATE [Suspect]
     Active Substance: TOPIRAMATE
     Route: 065
  304. TOPIRAMATE [Suspect]
     Active Substance: TOPIRAMATE
     Route: 065
  305. TOPIRAMATE [Suspect]
     Active Substance: TOPIRAMATE
  306. TOPIRAMATE [Suspect]
     Active Substance: TOPIRAMATE
  307. TOPIRAMATE [Suspect]
     Active Substance: TOPIRAMATE
     Route: 065
  308. TOPIRAMATE [Suspect]
     Active Substance: TOPIRAMATE
     Route: 065

REACTIONS (18)
  - Anuria [Unknown]
  - Extrapyramidal disorder [Unknown]
  - Abdominal pain [Unknown]
  - Weight decreased [Unknown]
  - Neovascularisation [Unknown]
  - Cough [Unknown]
  - Diarrhoea [Unknown]
  - Dyspepsia [Unknown]
  - Dyspnoea [Unknown]
  - Nausea [Unknown]
  - Paradoxical drug reaction [Unknown]
  - Migraine [Unknown]
  - Treatment failure [Unknown]
  - Drug ineffective [Unknown]
  - Drug ineffective for unapproved indication [Unknown]
  - Off label use [Unknown]
  - Product use in unapproved indication [Unknown]
  - Product use issue [Unknown]
